FAERS Safety Report 11877637 (Version 1)
Quarter: 2015Q4

REPORT INFORMATION
  Report Type: Other
  Country: US (occurrence: DE)
  Receive Date: 20151230
  Receipt Date: 20151230
  Transmission Date: 20160305
  Serious: Yes (Other)
  Sender: FDA-Public Use
  Company Number: US-MYLANLABS-2015M1046122

PATIENT

DRUGS (6)
  1. VENLAFAXINE [Suspect]
     Active Substance: VENLAFAXINE HYDROCHLORIDE
     Indication: OBSESSIVE-COMPULSIVE DISORDER
     Dosage: UNK (225 [MG/D ]/ SINCE 2010. 150 MG/D TILL WEEK 29, THEN 225 MG/D)
     Route: 064
     Dates: start: 20140419, end: 20150119
  2. GRIPPEIMPFSTOFF [Concomitant]
     Active Substance: INFLUENZA VIRUS VACCINE
     Indication: IMMUNISATION
     Dosage: UNK
     Route: 064
  3. ZYPREXA [Suspect]
     Active Substance: OLANZAPINE
     Indication: OBSESSIVE-COMPULSIVE DISORDER
     Dosage: 5 MG, QD (5 [MG/D ]/ SINCE 2010)
     Route: 064
     Dates: start: 20140419, end: 20150119
  4. AMOXICILLIN. [Concomitant]
     Active Substance: AMOXICILLIN
     Indication: STREPTOCOCCUS TEST POSITIVE
     Dosage: UNK
     Route: 064
     Dates: start: 20150118, end: 20150119
  5. FOLISURE [Concomitant]
     Indication: PROPHYLAXIS OF NEURAL TUBE DEFECT
     Dosage: UNK
     Route: 064
     Dates: start: 20140419, end: 20150105
  6. CERVIDIL [Concomitant]
     Active Substance: DINOPROSTONE
     Indication: LABOUR INDUCTION
     Dosage: UNK
     Route: 064
     Dates: start: 20150119, end: 20150119

REACTIONS (4)
  - Oxygen saturation decreased [Recovered/Resolved]
  - Foetal exposure during pregnancy [Unknown]
  - Lethargy [Recovered/Resolved]
  - Agitation neonatal [Recovered/Resolved]

NARRATIVE: CASE EVENT DATE: 20150119
